FAERS Safety Report 8031422-8 (Version None)
Quarter: 2011Q4

REPORT INFORMATION
  Report Type: 
  Country: None (occurrence: None)
  Receive Date: 20111201
  Receipt Date: 20110722
  Transmission Date: 20120403
  Serious: Yes (Death)
  Sender: FDA-Public Use
  Company Number: 292213USA

PATIENT
  Age: 58 Year
  Sex: Male

DRUGS (1)
  1. RIBAVIRIN [Suspect]
     Indication: HEPATITIS
     Dosage: 1200 MG (600 MG, 2 IN 1 D)
     Dates: start: 20110228

REACTIONS (1)
  - DEATH [None]
